FAERS Safety Report 17693575 (Version 2)
Quarter: 2020Q2

REPORT INFORMATION
  Report Type: Spontaneous
  Country: US (occurrence: US)
  Receive Date: 20200422
  Receipt Date: 20200507
  Transmission Date: 20200714
  Serious: Yes (Other)
  Sender: FDA-Public Use
  Company Number: US-BAYER-2020-058177

PATIENT
  Age: 21 Year
  Sex: Male

DRUGS (5)
  1. JIVI [Suspect]
     Active Substance: DAMOCTOCOG ALFA PEGOL
     Dosage: UNK
     Route: 042
  2. JIVI [Suspect]
     Active Substance: DAMOCTOCOG ALFA PEGOL
     Dosage: 3524 U, BIW
     Dates: start: 20200403, end: 20200403
  3. ABILIFY [Concomitant]
     Active Substance: ARIPIPRAZOLE
  4. TRILEPTAL [Concomitant]
     Active Substance: OXCARBAZEPINE
  5. ONFI [Concomitant]
     Active Substance: CLOBAZAM

REACTIONS (4)
  - Dyspnoea [Recovered/Resolved]
  - Cold-stimulus headache [Recovered/Resolved]
  - Paraesthesia [Recovered/Resolved]
  - Haemorrhage [None]

NARRATIVE: CASE EVENT DATE: 20200403
